FAERS Safety Report 15941442 (Version 2)
Quarter: 2020Q1

REPORT INFORMATION
  Report Type: Spontaneous
  Country: US (occurrence: US)
  Receive Date: 20190208
  Receipt Date: 20200309
  Transmission Date: 20200409
  Serious: Yes (Other)
  Sender: FDA-Public Use
  Company Number: US-ASTRAZENECA-2019SE11570

PATIENT
  Age: 27887 Day
  Weight: 132.4 kg

DRUGS (15)
  1. NEXIUM [Suspect]
     Active Substance: ESOMEPRAZOLE MAGNESIUM
     Route: 048
     Dates: start: 20130824
  2. HYDROCODON-ACETAMINOPHEN [Concomitant]
     Active Substance: ACETAMINOPHEN\HYDROCODONE
     Dates: start: 20111117
  3. MYSOLINE [Concomitant]
     Active Substance: PRIMIDONE
     Dates: start: 20151014
  4. NEXIUM [Suspect]
     Active Substance: ESOMEPRAZOLE MAGNESIUM
     Dosage: FOR MULTIPLE AND VARIOUS YEARS
     Route: 048
  5. AMLODIPINE BESYLATE. [Concomitant]
     Active Substance: AMLODIPINE BESYLATE
     Dates: start: 20110716
  6. PATANOL [Concomitant]
     Active Substance: OLOPATADINE HYDROCHLORIDE
     Dates: start: 20120306
  7. SODIUM BICARB [Concomitant]
     Active Substance: SODIUM BICARBONATE
     Dates: start: 20160928
  8. TRAMADOL. [Concomitant]
     Active Substance: TRAMADOL
     Dates: start: 20120806
  9. PRIMIDONE. [Concomitant]
     Active Substance: PRIMIDONE
     Dates: start: 20120630
  10. NEXIUM [Suspect]
     Active Substance: ESOMEPRAZOLE MAGNESIUM
     Dosage: GENERIC20.0MG UNKNOWN
     Route: 048
     Dates: start: 20170302
  11. NEXIUM [Suspect]
     Active Substance: ESOMEPRAZOLE MAGNESIUM
     Route: 048
     Dates: start: 20151014
  12. NEXIUM [Suspect]
     Active Substance: ESOMEPRAZOLE MAGNESIUM
     Dosage: 40.0MG UNKNOWN
     Route: 048
     Dates: start: 20110922
  13. CIPROFLOXACIN. [Concomitant]
     Active Substance: CIPROFLOXACIN
  14. AMLODIPINE BESYLATE AND BENAZEPRIL HYDROCHLORIDE [Concomitant]
     Active Substance: AMLODIPINE BESYLATE\BENAZEPRIL HYDROCHLORIDE
     Dates: start: 20100726
  15. PROPRANOLOL [Concomitant]
     Active Substance: PROPRANOLOL HYDROCHLORIDE
     Route: 048
     Dates: start: 20100521

REACTIONS (4)
  - Renal failure [Unknown]
  - Renal injury [Unknown]
  - Chronic kidney disease [Unknown]
  - Rebound acid hypersecretion [Unknown]

NARRATIVE: CASE EVENT DATE: 20151014
